FAERS Safety Report 6349687-7 (Version None)
Quarter: 2009Q3

REPORT INFORMATION
  Report Type: 
  Country: None (occurrence: None)
  Receive Date: 20090911
  Receipt Date: 20090901
  Transmission Date: 20100115
  Serious: Yes (Life-Threatening, Other)
  Sender: FDA-Public Use
  Company Number: US-ELI_LILLY_AND_COMPANY-US200909000568

PATIENT
  Age: 75 Year
  Sex: Male

DRUGS (1)
  1. FORTEO [Suspect]

REACTIONS (3)
  - EMPHYSEMA [None]
  - PNEUMONIA [None]
  - RESPIRATORY FAILURE [None]
